FAERS Safety Report 8959276 (Version 1)
Quarter: 2012Q4

REPORT INFORMATION
  Report Type: Report from Study
  Country: US (occurrence: US)
  Receive Date: 20121211
  Receipt Date: 20121211
  Transmission Date: 20130627
  Serious: No
  Sender: FDA-Public Use
  Company Number: US-VERTEX PHARMACEUTICALS INC.-2012-022516

PATIENT
  Age: 45 Year
  Sex: Female

DRUGS (9)
  1. INCIVEK [Suspect]
     Indication: HEPATITIS C
     Dosage: Dosage Form: Tablet, once every 8 hour
     Route: 048
  2. PEGASYS [Suspect]
     Indication: HEPATITIS C
     Dosage: Dosage Form: Unspecified
     Route: 065
  3. RIBAVIRIN [Suspect]
     Indication: HEPATITIS C
     Dosage: Dosage Form: Unspecified
     Route: 065
  4. RIBAVIRIN [Suspect]
     Dosage: Dosage Form: Unspecified, Dose lowered
     Route: 065
  5. TRAMADOL HYDROCHLORIDE [Suspect]
     Indication: PRODUCT USED FOR UNKNOWN INDICATION
     Dosage: Dosage Form: Unspecified
     Route: 065
  6. SYMBICORT TURBUHALER DRACO [Concomitant]
     Dosage: Dosage Form: Unspecified, 80-4.5
     Route: 065
  7. ALBUTEROL [Concomitant]
     Dosage: Dosage Form: Unspecified, 0.63mg/3
     Route: 065
  8. MIRTAZAPINE [Concomitant]
     Dosage: Dosage Form: Unspecified
     Route: 065
  9. PROCRIT (ERYTHROPOIETIN) [Concomitant]
     Dosage: Dosage Form: Unspecified, 40,000 U/ml every week
     Route: 065

REACTIONS (9)
  - Blood pressure increased [Unknown]
  - Eye swelling [Unknown]
  - Dry eye [Unknown]
  - Chills [Unknown]
  - Fatigue [Unknown]
  - Asthenia [Unknown]
  - Rash [Unknown]
  - Anaemia [Unknown]
  - Nausea [Unknown]
